FAERS Safety Report 4635513-0 (Version None)
Quarter: 2005Q2

REPORT INFORMATION
  Report Type: 
  Country: None (occurrence: None)
  Receive Date: 20050413
  Receipt Date: 20050405
  Transmission Date: 20051028
  Serious: Yes (Hospitalization, Other)
  Sender: FDA-Public Use
  Company Number: 2005037252

PATIENT
  Sex: Female

DRUGS (5)
  1. LIPITOR [Suspect]
     Indication: ILL-DEFINED DISORDER
  2. SIMVASTATIN [Suspect]
     Indication: BLOOD CHOLESTEROL INCREASED
  3. EZETIMIBE (EZETIMIBE) [Suspect]
     Indication: ILL-DEFINED DISORDER
  4. WARFARIN SODIUM [Concomitant]
  5. FUROSEMIDE 9FUROSEMIDE) [Concomitant]

REACTIONS (7)
  - CARDIAC VALVE DISEASE [None]
  - GASTRIC DISORDER [None]
  - HEADACHE [None]
  - LOW DENSITY LIPOPROTEIN INCREASED [None]
  - MALAISE [None]
  - MITRAL VALVE REPLACEMENT [None]
  - NEOPLASM MALIGNANT [None]
